FAERS Safety Report 19002119 (Version 1)
Quarter: 2021Q1

REPORT INFORMATION
  Report Type: Spontaneous
  Country: US (occurrence: US)
  Receive Date: 20210311
  Receipt Date: 20210311
  Transmission Date: 20210420
  Serious: Yes (Life-Threatening, Hospitalization)
  Sender: FDA-Public Use
  Company Number: None

PATIENT
  Age: 7 Year
  Sex: Male
  Weight: 33.6 kg

DRUGS (2)
  1. EPZ?6438 (EPZ?6438) TABLET [Suspect]
     Active Substance: TAZEMETOSTAT
     Indication: RHABDOID TUMOUR OF THE KIDNEY
     Route: 048
     Dates: start: 20200807
  2. EPZ?6438 (EPZ?6438) TABLET [Suspect]
     Active Substance: TAZEMETOSTAT
     Indication: RHABDOID TUMOUR OF THE KIDNEY
     Route: 048
     Dates: start: 20201118, end: 20210225

REACTIONS (4)
  - Nephrectomy [None]
  - Hypertension [None]
  - Seizure [None]
  - Posterior reversible encephalopathy syndrome [None]

NARRATIVE: CASE EVENT DATE: 20210305
